FAERS Safety Report 9917729 (Version 1)
Quarter: 2014Q1

REPORT INFORMATION
  Report Type: Report from Study
  Country: US (occurrence: US)
  Receive Date: 20140221
  Receipt Date: 20140221
  Transmission Date: 20141002
  Serious: Yes (Hospitalization)
  Sender: FDA-Public Use
  Company Number: US-EXELIXIS-XL18413003911

PATIENT
  Age: 51 Year
  Sex: Female

DRUGS (2)
  1. XL184 [Suspect]
     Indication: NON-SMALL CELL LUNG CANCER
     Dosage: 40 MG, QD
     Route: 048
     Dates: start: 20131022, end: 20131106
  2. ERLOTINIB [Suspect]
     Dosage: 150 MG, QD
     Route: 048
     Dates: start: 20131022

REACTIONS (3)
  - Fibrin D dimer increased [Unknown]
  - Atelectasis [Unknown]
  - Haemoptysis [Unknown]
